FAERS Safety Report 7730127-8 (Version None)
Quarter: 2011Q3

REPORT INFORMATION
  Report Type: 
  Country: None (occurrence: None)
  Receive Date: 20110906
  Receipt Date: 20110829
  Transmission Date: 20111222
  Serious: Yes (Hospitalization)
  Sender: FDA-Public Use
  Company Number: PHEH2011US03123

PATIENT
  Age: 34 Year
  Sex: Female
  Weight: 73 kg

DRUGS (8)
  1. INTERFERON BETA-1A [Concomitant]
     Indication: MULTIPLE SCLEROSIS
     Dosage: UNK UKN, UNK
     Route: 030
  2. ATENOLOL [Concomitant]
     Dosage: 25 MG, QD
     Dates: start: 20000101
  3. GILENYA [Suspect]
     Indication: PROGRESSIVE MULTIPLE SCLEROSIS
     Dosage: UNK UKN, UNK
  4. TOPAMAX [Concomitant]
     Indication: PARTIAL SEIZURES
     Dosage: 200 MG, QD
     Route: 048
     Dates: start: 20100410
  5. COPAXONE [Concomitant]
     Indication: MULTIPLE SCLEROSIS
     Dosage: 20 MG, QD
     Route: 058
     Dates: start: 20070701
  6. OMEPRAZOLE [Concomitant]
     Indication: GASTROOESOPHAGEAL REFLUX DISEASE
     Dosage: 20 MG, QD
     Route: 048
     Dates: start: 20090908
  7. PENTASA [Concomitant]
     Dosage: 4000 MG, QD
     Route: 048
     Dates: start: 20091005
  8. PROVIGIL [Concomitant]
     Indication: FATIGUE
     Dosage: 200 MG, QD
     Route: 048
     Dates: start: 20080229

REACTIONS (1)
  - DEHYDRATION [None]
